FAERS Safety Report 6005092-4 (Version None)
Quarter: 2008Q4

REPORT INFORMATION
  Report Type: 
  Country: None (occurrence: None)
  Receive Date: 20081216
  Receipt Date: 20081210
  Transmission Date: 20090506
  Serious: Yes (Death, Other)
  Sender: FDA-Public Use
  Company Number: PHHY2008JP09135

PATIENT
  Age: 52 Year
  Sex: Female
  Weight: 50.5 kg

DRUGS (5)
  1. GLEEVEC [Suspect]
     Indication: ACUTE LYMPHOCYTIC LEUKAEMIA
  2. CYCLOPHOSPHAMIDE [Concomitant]
  3. DOXORUBICIN HCL [Concomitant]
  4. VINCRISTINE [Concomitant]
  5. PREDNISOLONE [Concomitant]

REACTIONS (16)
  - ABDOMINAL PAIN [None]
  - ACUTE MYOCARDIAL INFARCTION [None]
  - BRADYCARDIA [None]
  - CONSTIPATION [None]
  - ELECTROCARDIOGRAM ABNORMAL [None]
  - FEBRILE NEUTROPENIA [None]
  - ILEUS PARALYTIC [None]
  - INDURATION [None]
  - INFECTION [None]
  - PURPURA [None]
  - PYREXIA [None]
  - SHOCK [None]
  - TROPONIN INCREASED [None]
  - VENTRICULAR FIBRILLATION [None]
  - VENTRICULAR TACHYCARDIA [None]
  - ZYGOMYCOSIS [None]
